FAERS Safety Report 7747562-4 (Version None)
Quarter: 2011Q3

REPORT INFORMATION
  Report Type: 
  Country: None (occurrence: None)
  Receive Date: 20110913
  Receipt Date: 20110901
  Transmission Date: 20111222
  Serious: Yes (Hospitalization)
  Sender: FDA-Public Use
  Company Number: FR-ELI_LILLY_AND_COMPANY-FR201109000582

PATIENT
  Sex: Male
  Weight: 72 kg

DRUGS (12)
  1. LOVENOX [Concomitant]
     Dosage: 4000 IU, UNKNOWN
     Route: 058
     Dates: start: 20110615, end: 20110622
  2. ACETAMINOPHEN [Concomitant]
     Dosage: UNK, UNKNOWN
  3. ASPIRIN [Concomitant]
     Dosage: 160 MG, QD
     Dates: start: 20110615
  4. LEXOMIL [Concomitant]
     Dosage: 0.25 DF, QD
     Dates: start: 20110615
  5. ATORVASTATIN CALCIUM [Concomitant]
     Dosage: 40 MG, QD
     Dates: start: 20110615, end: 20110622
  6. NEXIUM [Concomitant]
     Dosage: 20 MG, QD
     Dates: start: 20110615
  7. POTASSIUM CHLORIDE [Concomitant]
     Dosage: UNK, UNKNOWN
     Dates: start: 20110615
  8. RAMIPRIL [Concomitant]
     Dosage: 1.25 MG, QD
     Dates: start: 20110615, end: 20110622
  9. FUROSEMIDE [Concomitant]
     Dosage: 40 MG, BID
     Dates: start: 20110615
  10. EFFIENT [Suspect]
     Indication: STENT PLACEMENT
     Dosage: 10 MG, QD
     Route: 048
     Dates: start: 20110615
  11. NICOPATCH [Concomitant]
     Dosage: 14 MG, QD
     Route: 062
     Dates: start: 20110615
  12. BISOPROLOL FUMARATE [Concomitant]
     Dosage: 2.5 MG, QD
     Dates: start: 20110615, end: 20110622

REACTIONS (3)
  - ORTHOSTATIC HYPOTENSION [None]
  - LEFT VENTRICULAR FAILURE [None]
  - RASH MACULO-PAPULAR [None]
